FAERS Safety Report 5588853-5 (Version None)
Quarter: 2008Q1

REPORT INFORMATION
  Report Type: 
  Country: None (occurrence: None)
  Receive Date: 20080111
  Receipt Date: 20080102
  Transmission Date: 20080703
  Serious: Yes (Hospitalization, Other)
  Sender: FDA-Public Use
  Company Number: BR-PFIZER INC-2008001651

PATIENT
  Sex: Male

DRUGS (3)
  1. CHANTIX [Suspect]
     Indication: TOBACCO ABUSE
     Dates: start: 20070903, end: 20070917
  2. SERETIDE [Concomitant]
  3. AMIODARONE HCL [Concomitant]
     Dates: start: 20030101

REACTIONS (4)
  - APATHY [None]
  - ARRHYTHMIA [None]
  - DEPRESSION [None]
  - ORAL INTAKE REDUCED [None]
